FAERS Safety Report 4341796-7 (Version None)
Quarter: 2004Q2

REPORT INFORMATION
  Report Type: 
  Country: None (occurrence: None)
  Receive Date: 20040420
  Receipt Date: 20040416
  Transmission Date: 20050107
  Serious: No
  Sender: FDA-Public Use
  Company Number: US-GLAXOSMITHKLINE-A0507470A

PATIENT
  Age: 39 Year
  Sex: Female

DRUGS (3)
  1. WELLBUTRIN XL [Suspect]
     Indication: DEPRESSION
     Route: 048
     Dates: start: 20040101
  2. ZANTAC [Concomitant]
  3. ONE A DAY VITAMINS [Concomitant]

REACTIONS (4)
  - CHEST PAIN [None]
  - MEDICATION ERROR [None]
  - NERVOUSNESS [None]
  - TREMOR [None]
